FAERS Safety Report 20751455 (Version 4)
Quarter: 2022Q4

REPORT INFORMATION
  Report Type: Spontaneous
  Country: US (occurrence: US)
  Receive Date: 20220426
  Receipt Date: 20221014
  Transmission Date: 20230113
  Serious: No
  Sender: FDA-Public Use
  Company Number: US-PFIZER INC-202200442314

PATIENT
  Age: 61 Year
  Sex: Female

DRUGS (4)
  1. IBRANCE [Suspect]
     Active Substance: PALBOCICLIB
     Indication: Breast cancer female
     Dosage: 125 MG, CYCLIC, TAKE 1 TABLET DAILY ON DAYS 1-21 OF EACH 28-DAY CYCLE
     Route: 048
     Dates: start: 20211005
  2. NYSTATIN [Concomitant]
     Active Substance: NYSTATIN
     Dosage: UNK
  3. TRIAMCINOLONA [TRIAMCINOLONE] [Concomitant]
     Dosage: 0.1 %
  4. TRIAMCINOLON [TRIAMCINOLONE ACETONIDE] [Concomitant]
     Dosage: UNK

REACTIONS (6)
  - Product dose omission issue [Not Recovered/Not Resolved]
  - Hypertension [Unknown]
  - Dizziness [Unknown]
  - Nausea [Unknown]
  - Vomiting [Unknown]
  - Muscle spasms [Unknown]
